FAERS Safety Report 8168537-X (Version None)
Quarter: 2012Q1

REPORT INFORMATION
  Report Type: 
  Country: None (occurrence: None)
  Receive Date: 20120227
  Receipt Date: 20120227
  Transmission Date: 20120608
  Serious: No
  Sender: FDA-Public Use
  Company Number: None

PATIENT
  Age: 7 Year
  Sex: Male
  Weight: 22.679 kg

DRUGS (2)
  1. XOPENEX [Suspect]
     Indication: ASTHMA
     Dosage: 1 AMPULE
     Route: 050
     Dates: start: 20120110, end: 20120210
  2. XOPENEX [Suspect]
     Indication: BRONCHITIS
     Dosage: 1 AMPULE
     Route: 050
     Dates: start: 20120110, end: 20120210

REACTIONS (6)
  - VISION BLURRED [None]
  - BREATH ODOUR [None]
  - PRODUCT COUNTERFEIT [None]
  - FEELING JITTERY [None]
  - HEADACHE [None]
  - HEART RATE INCREASED [None]
